FAERS Safety Report 9138814 (Version 1)
Quarter: 2013Q1

REPORT INFORMATION
  Report Type: Spontaneous
  Country: US (occurrence: US)
  Receive Date: 20130305
  Receipt Date: 20130305
  Transmission Date: 20140127
  Serious: No
  Sender: FDA-Public Use
  Company Number: US-ENDO PHARMACEUTICALS INC.-PERC20110013

PATIENT
  Age: 51 Year
  Sex: Female
  Weight: 68.19 kg

DRUGS (11)
  1. PERCOCET [Suspect]
     Indication: PAIN
     Dosage: TWO TABS
     Route: 048
     Dates: start: 20110126, end: 20110129
  2. FLEXERIL [Concomitant]
     Indication: PRODUCT USED FOR UNKNOWN INDICATION
     Dosage: UNK
     Route: 048
     Dates: start: 20080128
  3. NORVASC [Concomitant]
     Indication: PRODUCT USED FOR UNKNOWN INDICATION
     Dosage: UNK
     Route: 048
     Dates: start: 20101015
  4. ZOCOR [Concomitant]
     Indication: HYPERTENSION
     Dosage: UNK
     Route: 048
     Dates: start: 20101015
  5. DILAUDID [Concomitant]
     Indication: PAIN
     Dosage: UNK
     Route: 065
  6. LACTATED RINGERS SOLUTION [Concomitant]
     Indication: PRODUCT USED FOR UNKNOWN INDICATION
     Dosage: UNK
     Route: 065
  7. KETOROLAC [Concomitant]
     Indication: PAIN
     Dosage: UNK
     Route: 065
  8. ONDANSETRON [Concomitant]
     Indication: PRODUCT USED FOR UNKNOWN INDICATION
     Dosage: UNK
     Route: 065
  9. PEPCID [Concomitant]
     Indication: PRODUCT USED FOR UNKNOWN INDICATION
     Dosage: UNK
     Route: 065
  10. ARIXTRA [Concomitant]
     Indication: OVARIAN CYST
     Dosage: UNK
     Route: 065
  11. CENTRUM [Concomitant]
     Indication: PRODUCT USED FOR UNKNOWN INDICATION
     Dosage: UNK
     Route: 065
     Dates: start: 1989

REACTIONS (1)
  - Ileus [Recovered/Resolved]
